FAERS Safety Report 16610456 (Version 1)
Quarter: 2019Q3

REPORT INFORMATION
  Report Type: Spontaneous
  Country: US (occurrence: US)
  Receive Date: 20190722
  Receipt Date: 20190722
  Transmission Date: 20191004
  Serious: Yes (Other)
  Sender: FDA-Public Use
  Company Number: US-OTSUKA-2019_026645

PATIENT
  Age: 36 Year
  Sex: Male

DRUGS (4)
  1. ABILIFY [Suspect]
     Active Substance: ARIPIPRAZOLE
     Indication: SCHIZOPHRENIA
     Dosage: 5 MG, QD (IN MORNING)
     Route: 065
     Dates: start: 20190713
  2. ABILIFY [Suspect]
     Active Substance: ARIPIPRAZOLE
     Dosage: 5 MG, BID
     Route: 065
  3. ABILIFY [Suspect]
     Active Substance: ARIPIPRAZOLE
     Dosage: 20 MG, QD (IN EVENING)
     Route: 065
     Dates: start: 20190713
  4. ABILIFY [Suspect]
     Active Substance: ARIPIPRAZOLE
     Dosage: 20 MG, QD
     Route: 065
     Dates: start: 20190712

REACTIONS (6)
  - Renal disorder [Not Recovered/Not Resolved]
  - Blood sodium decreased [Unknown]
  - Glomerular filtration rate decreased [Unknown]
  - Hallucination, auditory [Unknown]
  - Inappropriate schedule of product administration [Unknown]
  - Restlessness [Recovering/Resolving]
